FAERS Safety Report 7900705-1 (Version None)
Quarter: 2011Q4

REPORT INFORMATION
  Report Type: 
  Country: None (occurrence: None)
  Receive Date: 20111108
  Receipt Date: 20111102
  Transmission Date: 20120403
  Serious: Yes (Hospitalization)
  Sender: FDA-Public Use
  Company Number: IT-SANOFI-AVENTIS-2011SA066420

PATIENT
  Age: 66 Year
  Sex: Male
  Weight: 79 kg

DRUGS (7)
  1. CISPLATIN [Suspect]
     Indication: NON-SMALL CELL LUNG CANCER
     Route: 042
     Dates: start: 20110801, end: 20110801
  2. CISPLATIN [Suspect]
     Route: 042
     Dates: start: 20110916, end: 20110916
  3. BLINDED THERAPY [Suspect]
     Route: 042
     Dates: start: 20110915, end: 20110915
  4. DOCETAXEL [Suspect]
     Indication: NON-SMALL CELL LUNG CANCER
     Route: 042
     Dates: start: 20110801, end: 20110801
  5. BLINDED THERAPY [Suspect]
     Indication: NON-SMALL CELL LUNG CANCER
     Route: 042
     Dates: start: 20110801, end: 20110801
  6. DOCETAXEL [Suspect]
     Route: 042
     Dates: start: 20110916, end: 20110916
  7. VASERETIC [Concomitant]
     Indication: HYPERTENSION

REACTIONS (1)
  - HYPOCALCAEMIA [None]
